FAERS Safety Report 21970285 (Version 1)
Quarter: 2023Q1

REPORT INFORMATION
  Report Type: Spontaneous
  Country: JP (occurrence: JP)
  Receive Date: 20230209
  Receipt Date: 20230209
  Transmission Date: 20230418
  Serious: Yes (Hospitalization)
  Sender: FDA-Public Use
  Company Number: JP-MTPC-MTPC2023-0003238

PATIENT
  Age: 4 Year
  Sex: Female

DRUGS (8)
  1. EDARAVONE [Suspect]
     Active Substance: EDARAVONE
     Indication: Encephalitis
     Route: 065
  2. EDARAVONE [Suspect]
     Active Substance: EDARAVONE
     Indication: Cerebral infarction
  3. LEVETIRACETAM [Concomitant]
     Active Substance: LEVETIRACETAM
     Indication: Encephalitis
     Route: 065
  4. LEVETIRACETAM [Concomitant]
     Active Substance: LEVETIRACETAM
     Indication: Cerebral infarction
  5. ACYCLOVIR [Concomitant]
     Active Substance: ACYCLOVIR
     Indication: Encephalitis
     Route: 065
  6. ACYCLOVIR [Concomitant]
     Active Substance: ACYCLOVIR
     Indication: Cerebral infarction
  7. CEFOTAXIME SODIUM [Concomitant]
     Active Substance: CEFOTAXIME SODIUM
     Indication: Encephalitis
     Route: 065
  8. CEFOTAXIME SODIUM [Concomitant]
     Active Substance: CEFOTAXIME SODIUM
     Indication: Cerebral infarction

REACTIONS (7)
  - Restlessness [Recovering/Resolving]
  - Somnolence [Recovering/Resolving]
  - Dyskinesia [Recovering/Resolving]
  - Encephalitis autoimmune [Recovering/Resolving]
  - Urinary tract infection [Recovering/Resolving]
  - Therapeutic response decreased [Unknown]
  - Off label use [Unknown]
